APPROVED DRUG PRODUCT: FEXOFENADINE HYDROCHLORIDE ALLERGY
Active Ingredient: FEXOFENADINE HYDROCHLORIDE
Strength: 60MG
Dosage Form/Route: TABLET;ORAL
Application: A211075 | Product #001
Applicant: GRANULES INDIA LTD
Approved: Oct 18, 2019 | RLD: No | RS: No | Type: OTC